FAERS Safety Report 19174706 (Version 1)
Quarter: 2021Q2

REPORT INFORMATION
  Report Type: Spontaneous
  Country: BE (occurrence: BE)
  Receive Date: 20210423
  Receipt Date: 20210423
  Transmission Date: 20210717
  Serious: Yes (Death, Other)
  Sender: FDA-Public Use
  Company Number: BE-PFIZER INC-HQWYE955111APR05

PATIENT
  Age: 68 Year
  Sex: Male

DRUGS (1)
  1. AMIODARONE HCL [Suspect]
     Active Substance: AMIODARONE HYDROCHLORIDE
     Indication: ATRIAL FIBRILLATION
     Dosage: UNK
     Route: 065

REACTIONS (5)
  - Cardiogenic shock [Fatal]
  - Atrioventricular block complete [Fatal]
  - Drug level increased [Fatal]
  - Ischaemic hepatitis [Fatal]
  - Acute kidney injury [Unknown]
